FAERS Safety Report 21123120 (Version 1)
Quarter: 2022Q3

REPORT INFORMATION
  Report Type: Spontaneous
  Country: US (occurrence: US)
  Receive Date: 20220724
  Receipt Date: 20220724
  Transmission Date: 20221026
  Serious: Yes (Other)
  Sender: FDA-Public Use
  Company Number: US-STRIDES ARCOLAB LIMITED-2021SP026210

PATIENT
  Age: 13 Year
  Sex: Male

DRUGS (3)
  1. MYCOPHENOLATE MOFETIL [Suspect]
     Active Substance: MYCOPHENOLATE MOFETIL
     Indication: Henoch-Schonlein purpura
     Dosage: STARTED APPROXIMATELY 6 MONTHS PRIOR TO THE PRESENTATION
     Route: 065
  2. MYCOPHENOLATE MOFETIL [Suspect]
     Active Substance: MYCOPHENOLATE MOFETIL
     Dosage: UNK, THERAPY WAS HELD FOR 1 WEEK
     Route: 065
  3. COLCHICINE [Suspect]
     Active Substance: COLCHICINE
     Indication: Henoch-Schonlein purpura
     Dosage: STARTED FOR ALMOST 2 YEARS PRIOR TO THE PRESENTATION
     Route: 065

REACTIONS (3)
  - COVID-19 [Recovered/Resolved]
  - Post-acute COVID-19 syndrome [Recovered/Resolved]
  - Off label use [Unknown]
